FAERS Safety Report 13314131 (Version 1)
Quarter: 2017Q1

REPORT INFORMATION
  Report Type: Spontaneous
  Country: US (occurrence: US)
  Receive Date: 20170309
  Receipt Date: 20170309
  Transmission Date: 20170428
  Serious: Yes (Other)
  Sender: FDA-Public Use
  Company Number: US-TEVA-745944USA

PATIENT
  Age: 71 Year
  Sex: Female

DRUGS (18)
  1. DILT-XR [Concomitant]
     Active Substance: DILTIAZEM
  2. LEVOTHYROXINE. [Concomitant]
     Active Substance: LEVOTHYROXINE
  3. LEVETIRACETA [Concomitant]
  4. SERTRALINE [Concomitant]
     Active Substance: SERTRALINE HYDROCHLORIDE
  5. MELOXICAM. [Concomitant]
     Active Substance: MELOXICAM
  6. TRAZODONE [Concomitant]
     Active Substance: TRAZODONE HYDROCHLORIDE
  7. METOPROLOL. [Concomitant]
     Active Substance: METOPROLOL
  8. ROPINIROLE. [Concomitant]
     Active Substance: ROPINIROLE
  9. CLONAZEPAM. [Concomitant]
     Active Substance: CLONAZEPAM
  10. VITAMIN D [Concomitant]
     Active Substance: CHOLECALCIFEROL
  11. MORPHINE SULFATE. [Concomitant]
     Active Substance: MORPHINE SULFATE
  12. DECARA [Concomitant]
  13. TIZANIDINE. [Concomitant]
     Active Substance: TIZANIDINE
  14. ATORVASTATIN [Concomitant]
     Active Substance: ATORVASTATIN
  15. COPAXONE [Suspect]
     Active Substance: GLATIRAMER ACETATE
     Indication: MULTIPLE SCLEROSIS
     Route: 058
     Dates: start: 201501
  16. GABAPENTIN. [Concomitant]
     Active Substance: GABAPENTIN
  17. VESICARE [Concomitant]
     Active Substance: SOLIFENACIN SUCCINATE
  18. ASA+DIPYRIDAMOLE [Concomitant]

REACTIONS (2)
  - Multiple sclerosis relapse [Unknown]
  - Paraesthesia [Unknown]

NARRATIVE: CASE EVENT DATE: 201702
